FAERS Safety Report 9571892 (Version 2)
Quarter: 2013Q4

REPORT INFORMATION
  Report Type: Report from Study
  Country: US (occurrence: US)
  Receive Date: 20131001
  Receipt Date: 20131001
  Transmission Date: 20140711
  Serious: No
  Sender: FDA-Public Use
  Company Number: US-ABBVIE-13P-163-1033311-00

PATIENT
  Age: 28 Year
  Sex: Female

DRUGS (3)
  1. KALETRA [Suspect]
     Indication: ANTIRETROVIRAL THERAPY
     Dosage: 6 TABS DAILY
     Route: 048
     Dates: start: 20120206
  2. ATRIPLA [Suspect]
     Indication: ANTIRETROVIRAL THERAPY
     Dosage: 1 TAB/CAPS DAILY
     Route: 048
     Dates: end: 20120206
  3. COMBIVIR [Suspect]
     Indication: ANTIRETROVIRAL THERAPY
     Dosage: 2 TAB/CAPS DAILY
     Route: 048
     Dates: start: 20120206

REACTIONS (1)
  - Polyhydramnios [Unknown]
